FAERS Safety Report 10087109 (Version 1)
Quarter: 2014Q2

REPORT INFORMATION
  Report Type: Other
  Country: KR (occurrence: KR)
  Receive Date: 20140418
  Receipt Date: 20140418
  Transmission Date: 20141212
  Serious: Yes (Death)
  Sender: FDA-Public Use
  Company Number: KR-BRISTOL-MYERS SQUIBB COMPANY-20622650

PATIENT
  Age: 61 Year
  Sex: Male

DRUGS (2)
  1. IFOSFAMIDE [Suspect]
     Indication: INFLAMMATORY MALIGNANT FIBROUS HISTIOCYTOMA
     Dosage: 1DF = 2.5G/M2
  2. ADRIAMYCIN [Concomitant]
     Indication: INFLAMMATORY MALIGNANT FIBROUS HISTIOCYTOMA

REACTIONS (2)
  - Fanconi syndrome acquired [Fatal]
  - Nephrogenic diabetes insipidus [Fatal]
